FAERS Safety Report 9981330 (Version 1)
Quarter: 2014Q1

REPORT INFORMATION
  Report Type: Spontaneous
  Country: US (occurrence: None)
  Receive Date: 20140305
  Receipt Date: 20140305
  Transmission Date: 20141002
  Serious: Yes (Hospitalization)
  Sender: FDA-Public Use
  Company Number: SYM-2014-17936

PATIENT
  Age: 75 Year
  Sex: Female

DRUGS (7)
  1. DILTIAZEM HYDROCHLORIDE [Suspect]
     Indication: HYPERTENSION
  2. NITROGLYCERIN TRANSDERMAL SYSTEM (GLYCERYL TRINITRATE) (GLYCERYL TRINITRATE) [Concomitant]
  3. TRIAMTERENE AND HYDROCHLOROTHIAZID ^HARRIS^ (DYAZIDE) (HYDROCHLOROTHIAZIDE, TRIAMTERENE) [Concomitant]
  4. PENTOXIFYLLINE (PENTOXIFYLLINE) (PENTOXIFYLLINE) [Concomitant]
  5. SALSALATE (SALSALATE) (SALSALATE) [Concomitant]
  6. IPRATROPIUM BROMIDE (IPRATROPIUM BROMIDE) (IPRATROPIUM BROMIDE) [Concomitant]
  7. ALBUTEROL (SALBUTAMOL) (SALBUTAMOL) [Concomitant]

REACTIONS (10)
  - Myoclonus [None]
  - Intentional overdose [None]
  - Dementia [None]
  - Somnolence [None]
  - Oxygen saturation decreased [None]
  - PO2 decreased [None]
  - PCO2 increased [None]
  - Blood bicarbonate increased [None]
  - Self-medication [None]
  - Confusional state [None]
